FAERS Safety Report 6256387-0 (Version None)
Quarter: 2009Q3

REPORT INFORMATION
  Report Type: 
  Country: None (occurrence: None)
  Receive Date: 20090706
  Receipt Date: 20090625
  Transmission Date: 20100115
  Serious: Yes (Life-Threatening, Hospitalization)
  Sender: FDA-Public Use
  Company Number: FR-AMGEN-US353801

PATIENT
  Age: 72 Year
  Sex: Female

DRUGS (5)
  1. ENBREL [Suspect]
     Indication: RHEUMATOID ARTHRITIS
     Route: 058
     Dates: start: 20080827, end: 20081204
  2. CORTANCYL [Suspect]
     Indication: RHEUMATOID ARTHRITIS
     Route: 048
  3. MOPRAL [Concomitant]
     Dosage: UNKNOWN
  4. SPECIAFOLDINE [Concomitant]
     Dosage: UNKNOWN
     Route: 048
  5. SIMVASTATIN [Concomitant]
     Dosage: UNKNOWN
     Route: 048

REACTIONS (6)
  - CARDIOGENIC SHOCK [None]
  - CONFUSIONAL STATE [None]
  - FALL [None]
  - HERPES ZOSTER OPHTHALMIC [None]
  - HYPOTHERMIA [None]
  - VIRAL MYOCARDITIS [None]
